FAERS Safety Report 5780540-3 (Version None)
Quarter: 2008Q2

REPORT INFORMATION
  Report Type: 
  Country: None (occurrence: None)
  Receive Date: 20080620
  Receipt Date: 20080610
  Transmission Date: 20081010
  Serious: Yes (Hospitalization)
  Sender: FDA-Public Use
  Company Number: PL-SANOFI-SYNTHELABO-A01200806689

PATIENT
  Age: 70 Year
  Sex: Female

DRUGS (10)
  1. METFORMIN [Concomitant]
     Indication: DRUG USE FOR UNKNOWN INDICATION
     Dosage: UNK
     Route: 065
  2. ATORVASTATIN [Concomitant]
     Indication: DRUG USE FOR UNKNOWN INDICATION
     Dosage: UNK
     Route: 065
  3. AMLODIPINE [Concomitant]
     Indication: DRUG USE FOR UNKNOWN INDICATION
     Dosage: UNK
     Route: 065
  4. INDAPAMIDE [Concomitant]
     Indication: DRUG USE FOR UNKNOWN INDICATION
     Dosage: UNK
     Route: 065
  5. RAMIPRIL [Concomitant]
     Indication: DRUG USE FOR UNKNOWN INDICATION
     Dosage: UNK
     Route: 065
  6. BISOPROLOL FUMARATE [Concomitant]
     Indication: DRUG USE FOR UNKNOWN INDICATION
     Dosage: UNK
     Route: 065
  7. ASPIRIN [Suspect]
     Indication: STENT PLACEMENT
     Route: 065
  8. ASPIRIN [Suspect]
     Route: 065
  9. CLOPIDOGREL [Suspect]
     Indication: STENT PLACEMENT
     Dosage: 300 MG LOADING DOSE FOLLWED BY 75 MG DAILY
     Route: 048
  10. CLOPIDOGREL [Suspect]
     Route: 048

REACTIONS (2)
  - DRUG RESISTANCE [None]
  - HYPERSENSITIVITY [None]
